FAERS Safety Report 7830405-8 (Version None)
Quarter: 2011Q4

REPORT INFORMATION
  Report Type: 
  Country: None (occurrence: None)
  Receive Date: 20111019
  Receipt Date: 20111004
  Transmission Date: 20120403
  Serious: Yes (Hospitalization, Other)
  Sender: FDA-Public Use
  Company Number: AUR-APL-2011-05428

PATIENT
  Age: 87 Year
  Sex: Female

DRUGS (11)
  1. ACETYLSALICYLATE LYSINE (ACETYLSALICYLATE LYSINE) [Concomitant]
  2. ACETAMINOPHEN [Concomitant]
  3. METOPROLOL TARTRATE [Suspect]
     Indication: HYPERTENSION
     Dosage: (50 MG, 1 D), ORAL
     Route: 048
  4. CITALOPRAM HYDROBROMIDE [Concomitant]
  5. GAVISCON (GAVISCON /00237601/) [Concomitant]
  6. NITROGLYCERIN [Suspect]
     Indication: ANGINA PECTORIS
     Dosage: (5 MG, 1 D), TRANSDERMAL
     Route: 062
     Dates: end: 20110901
  7. ROSUVASTATIN CALCIUM [Concomitant]
  8. PANTOPRAZOLE [Concomitant]
  9. RAMIPRIL [Suspect]
     Indication: HYPERTENSION
     Dosage: (1.25 MG, 1 D, ORAL)
     Route: 048
  10. CLONAZEPAM [Suspect]
     Indication: PRODUCT USED FOR UNKNOWN INDICATION
     Dosage: (2.5 MILLIGRAM/MILLILITERS), ORAL
     Route: 048
     Dates: end: 20110901
  11. DEPAMIDE (VALPROMIDE) [Concomitant]

REACTIONS (12)
  - AREFLEXIA [None]
  - CEREBRAL DISORDER [None]
  - TRAUMATIC HAEMATOMA [None]
  - FALL [None]
  - BLOOD PRESSURE SYSTOLIC INCREASED [None]
  - CEREBRAL SMALL VESSEL ISCHAEMIC DISEASE [None]
  - DISORIENTATION [None]
  - OXYGEN SATURATION DECREASED [None]
  - PERIORBITAL HAEMATOMA [None]
  - CEREBRAL ATROPHY [None]
  - RALES [None]
  - ORTHOSTATIC HYPOTENSION [None]
